FAERS Safety Report 16171475 (Version 1)
Quarter: 2019Q2

REPORT INFORMATION
  Report Type: Spontaneous
  Country: US (occurrence: US)
  Receive Date: 20190408
  Receipt Date: 20190408
  Transmission Date: 20190711
  Serious: Yes (Hospitalization)
  Sender: FDA-Public Use
  Company Number: US-EGALET US INC-US-2019EGA000222

PATIENT
  Age: 45 Year
  Sex: Female

DRUGS (2)
  1. MORPHINE [Suspect]
     Active Substance: MORPHINE
     Indication: PRODUCT USED FOR UNKNOWN INDICATION
     Dosage: 242 MG, QD
  2. OXYCODONE HYDROCHLORIDE. [Suspect]
     Active Substance: OXYCODONE HYDROCHLORIDE
     Indication: PELVIC PAIN
     Dosage: UNK

REACTIONS (3)
  - Hyperaesthesia [Unknown]
  - Impaired gastric emptying [Unknown]
  - Drug tolerance [Unknown]
